FAERS Safety Report 23259463 (Version 2)
Quarter: 2023Q4

REPORT INFORMATION
  Report Type: Spontaneous
  Country: JP (occurrence: JP)
  Receive Date: 20231204
  Receipt Date: 20231211
  Transmission Date: 20240110
  Serious: Yes (Hospitalization, Other)
  Sender: FDA-Public Use
  Company Number: JP-MLMSERVICE-20231121-4675963-1

PATIENT
  Age: 64 Year
  Sex: Male
  Weight: 73 kg

DRUGS (1)
  1. METHOTREXATE SODIUM [Suspect]
     Active Substance: METHOTREXATE SODIUM
     Indication: Rheumatoid arthritis
     Dosage: UNK

REACTIONS (4)
  - Hodgkin^s disease [Recovered/Resolved]
  - Lymphoproliferative disorder [Recovered/Resolved]
  - Nephrotic syndrome [Recovered/Resolved]
  - Epstein-Barr virus infection reactivation [Recovered/Resolved]
